FAERS Safety Report 12060370 (Version 1)
Quarter: 2016Q1

REPORT INFORMATION
  Report Type: Spontaneous
  Country: US (occurrence: US)
  Receive Date: 20160210
  Receipt Date: 20160210
  Transmission Date: 20160526
  Serious: Yes (Hospitalization)
  Sender: FDA-Public Use
  Company Number: US-ARBOR PHARMACEUTICALS, LLC-US-2016ARB000099

PATIENT
  Age: 24 Year
  Sex: Male

DRUGS (1)
  1. ERYTHROMYCIN. [Suspect]
     Active Substance: ERYTHROMYCIN
     Indication: UPPER RESPIRATORY TRACT INFECTION
     Dosage: 1 DF, SINGLE

REACTIONS (4)
  - Mouth ulceration [Unknown]
  - Mucosal inflammation [Unknown]
  - Stevens-Johnson syndrome [Unknown]
  - Purulence [Unknown]
